FAERS Safety Report 10475792 (Version 1)
Quarter: 2014Q3

REPORT INFORMATION
  Report Type: Spontaneous
  Country: US (occurrence: US)
  Receive Date: 20140925
  Receipt Date: 20140925
  Transmission Date: 20150326
  Serious: No
  Sender: FDA-Public Use
  Company Number: US-GLAXOSMITHKLINE-A1052069A

PATIENT
  Age: 64 Year
  Sex: Male

DRUGS (2)
  1. LOTREL [Concomitant]
     Active Substance: AMLODIPINE BESYLATE\BENAZEPRIL HYDROCHLORIDE
  2. COREG [Suspect]
     Active Substance: CARVEDILOL
     Indication: ARRHYTHMIA SUPRAVENTRICULAR
     Dosage: 25MG PER DAY
     Route: 048
     Dates: start: 2006

REACTIONS (3)
  - Arrhythmia [Unknown]
  - Product quality issue [Unknown]
  - Cardiac disorder [Not Recovered/Not Resolved]

NARRATIVE: CASE EVENT DATE: 201311
